FAERS Safety Report 8621725-8 (Version None)
Quarter: 2012Q3

REPORT INFORMATION
  Report Type: 
  Country: None (occurrence: None)
  Receive Date: 20120821
  Receipt Date: 20120821
  Transmission Date: 20120928
  Serious: Yes (Hospitalization)
  Sender: FDA-Public Use
  Company Number: None

PATIENT
  Age: 67 Year
  Sex: Male
  Weight: 94.5 kg

DRUGS (2)
  1. CLINDAMYCIN [Suspect]
     Indication: INFECTION
     Dosage: 300 MG  QID PO
     Route: 048
     Dates: start: 20120625, end: 20120701
  2. CLINDAMYCIN [Suspect]
     Indication: ARTHROPOD BITE
     Dosage: 300 MG  QID PO
     Route: 048
     Dates: start: 20120625, end: 20120701

REACTIONS (3)
  - PNEUMATOSIS INTESTINALIS [None]
  - CLOSTRIDIUM DIFFICILE COLITIS [None]
  - DRUG INEFFECTIVE [None]
